FAERS Safety Report 11903309 (Version 1)
Quarter: 2016Q1

REPORT INFORMATION
  Report Type: Report from Study
  Country: US (occurrence: US)
  Receive Date: 20160110
  Receipt Date: 20160110
  Transmission Date: 20160526
  Serious: No
  Sender: FDA-Public Use
  Company Number: GXBR2015US002631

PATIENT
  Age: 51 Year
  Sex: Female

DRUGS (2)
  1. SANCTURA [Concomitant]
     Active Substance: TROSPIUM CHLORIDE
     Dosage: UNK DF, UNK
  2. GLATOPA [Suspect]
     Active Substance: GLATIRAMER ACETATE
     Indication: PRODUCT USED FOR UNKNOWN INDICATION
     Dosage: 20 MG, QD
     Route: 065
     Dates: start: 20151121

REACTIONS (6)
  - Injection site mass [Recovered/Resolved]
  - Dysgeusia [Not Recovered/Not Resolved]
  - Injection site pain [Recovered/Resolved]
  - Dry mouth [Not Recovered/Not Resolved]
  - Injection site erythema [Recovering/Resolving]
  - Pruritus [Not Recovered/Not Resolved]

NARRATIVE: CASE EVENT DATE: 20151121
